FAERS Safety Report 15726418 (Version 2)
Quarter: 2020Q1

REPORT INFORMATION
  Report Type: Spontaneous
  Country: BE (occurrence: BE)
  Receive Date: 20181217
  Receipt Date: 20200104
  Transmission Date: 20200409
  Serious: Yes (Life-Threatening, Hospitalization, Other)
  Sender: FDA-Public Use
  Company Number: BE-AUROBINDO-AUR-APL-2018-059898

PATIENT
  Age: 93 Year

DRUGS (2)
  1. MOXIFLOXACIN. [Suspect]
     Active Substance: MOXIFLOXACIN
     Indication: PRODUCT USED FOR UNKNOWN INDICATION
     Dosage: UNK
     Route: 065
  2. AMOXICILLIN+CLAVULANIC ACID [Suspect]
     Active Substance: AMOXICILLIN\CLAVULANIC ACID
     Indication: PRODUCT USED FOR UNKNOWN INDICATION
     Dosage: UNK
     Route: 065

REACTIONS (4)
  - Pneumonia staphylococcal [Not Recovered/Not Resolved]
  - Epistaxis [Not Recovered/Not Resolved]
  - Haemoptysis [Not Recovered/Not Resolved]
  - Hypopnoea [Not Recovered/Not Resolved]
